FAERS Safety Report 11696554 (Version 1)
Quarter: 2015Q4

REPORT INFORMATION
  Report Type: Spontaneous
  Country: US (occurrence: US)
  Receive Date: 20151104
  Receipt Date: 20151104
  Transmission Date: 20160304
  Serious: Yes (Death, Hospitalization)
  Sender: FDA-Public Use
  Company Number: US-PFIZER INC-2015369906

PATIENT
  Age: 77 Year
  Sex: Male
  Weight: 102 kg

DRUGS (1)
  1. VFEND [Suspect]
     Active Substance: VORICONAZOLE
     Dosage: UNK

REACTIONS (4)
  - Lung disorder [Unknown]
  - Death [Fatal]
  - Acute myeloid leukaemia [Unknown]
  - Renal disorder [Unknown]

NARRATIVE: CASE EVENT DATE: 20151026
